FAERS Safety Report 8144654 (Version 11)
Quarter: 2013Q4

REPORT INFORMATION
  Report Type: Report from Study
  Country: CA (occurrence: CA)
  Receive Date: 20110920
  Receipt Date: 20131112
  Transmission Date: 20140711
  Serious: Yes (Death, Hospitalization)
  Sender: FDA-Public Use
  Company Number: CA-BRISTOL-MYERS SQUIBB COMPANY-16066441

PATIENT
  Age: 70 Year
  Sex: Male

DRUGS (8)
  1. IPILIMUMAB [Suspect]
     Indication: MALIGNANT MELANOMA
     Dosage: NO OF COURSE: 1.
     Route: 042
     Dates: start: 20110908, end: 20110908
  2. AMARYL [Concomitant]
  3. AVALIDE [Concomitant]
     Dosage: PRODUCT STRENTH IS 300/12.5MG?1 DF=12.5MG-300MG
  4. ATORVASTATIN [Concomitant]
  5. DIAMICRON [Concomitant]
  6. METFORMIN [Concomitant]
  7. METFORMIN [Concomitant]
  8. HYDROMORPHONE [Concomitant]

REACTIONS (7)
  - Metastatic malignant melanoma [Fatal]
  - Alveolitis [Not Recovered/Not Resolved]
  - Dyspepsia [Recovered/Resolved with Sequelae]
  - Fatigue [Recovered/Resolved]
  - Decreased appetite [Recovered/Resolved]
  - Diarrhoea [Recovered/Resolved]
  - Transaminases increased [Unknown]
